FAERS Safety Report 24252032 (Version 1)
Quarter: 2024Q3

REPORT INFORMATION
  Report Type: Spontaneous
  Country: US (occurrence: US)
  Receive Date: 20240827
  Receipt Date: 20240827
  Transmission Date: 20241017
  Serious: Yes (Other)
  Sender: AMGEN
  Company Number: US-AMGEN-USASP2024168322

PATIENT
  Sex: Female

DRUGS (1)
  1. TEPEZZA [Suspect]
     Active Substance: TEPROTUMUMAB-TRBW
     Indication: Product used for unknown indication
     Dosage: UNK
     Route: 065
     Dates: start: 20200415, end: 20200908

REACTIONS (5)
  - Exophthalmos [Unknown]
  - Autoimmune disorder [Unknown]
  - Dry eye [Unknown]
  - Headache [Unknown]
  - Drug ineffective [Unknown]
